FAERS Safety Report 7426363-0 (Version None)
Quarter: 2011Q2

REPORT INFORMATION
  Report Type: 
  Country: None (occurrence: None)
  Receive Date: 20110420
  Receipt Date: 20101029
  Transmission Date: 20111010
  Serious: Yes (Hospitalization, Other)
  Sender: FDA-Public Use
  Company Number: US-BAYER-201030256NA

PATIENT
  Age: 19 Year
  Weight: 60.317 kg

DRUGS (4)
  1. MUSCLE RELAXANT [Concomitant]
     Dosage: UNK
     Dates: start: 20060116
  2. SERTRALINE [Concomitant]
     Dosage: UNK
  3. ZOLOFT [Concomitant]
  4. YASMIN [Suspect]
     Indication: ORAL CONTRACEPTION
     Dosage: UNK UNK, UNK
     Route: 048
     Dates: start: 20051201, end: 20060101

REACTIONS (7)
  - DEEP VEIN THROMBOSIS [None]
  - DISCOMFORT [None]
  - ANXIETY [None]
  - VARICOSE VEIN [None]
  - PAIN IN EXTREMITY [None]
  - GENERAL PHYSICAL CONDITION ABNORMAL [None]
  - OEDEMA PERIPHERAL [None]
